FAERS Safety Report 5270185-6 (Version None)
Quarter: 2007Q1

REPORT INFORMATION
  Report Type: 
  Country: None (occurrence: None)
  Receive Date: 20070314
  Receipt Date: 20070301
  Transmission Date: 20070707
  Serious: Yes (Hospitalization)
  Sender: FDA-Public Use
  Company Number: 2007SP003962

PATIENT
  Age: 10 Year
  Sex: Female

DRUGS (2)
  1. TEMODAL [Suspect]
     Indication: MALIGNANT GLIOMA
     Dosage: 200 MG; QD; PO
     Route: 048
     Dates: start: 20060613, end: 20060617
  2. CISPLATIN [Suspect]
     Indication: MALIGNANT GLIOMA
     Dosage: 80 MG; QD; IV
     Route: 042
     Dates: start: 20060612, end: 20060612

REACTIONS (5)
  - CATHETER SEPSIS [None]
  - FEBRILE BONE MARROW APLASIA [None]
  - HAEMOGLOBIN DECREASED [None]
  - PLATELET COUNT DECREASED [None]
  - STAPHYLOCOCCAL SEPSIS [None]
